FAERS Safety Report 6083293-7 (Version None)
Quarter: 2009Q1

REPORT INFORMATION
  Report Type: 
  Country: None (occurrence: None)
  Receive Date: 20090213
  Receipt Date: 20090213
  Transmission Date: 20090719
  Serious: No
  Sender: FDA-Public Use
  Company Number: None

PATIENT
  Age: 59 Year
  Sex: Male
  Weight: 77.1115 kg

DRUGS (1)
  1. ALDARA [Suspect]
     Indication: PRECANCEROUS SKIN LESION
     Dosage: SMALL AMOUNT ON TEMPLE EVERY OTHER DAY
     Dates: start: 20090115, end: 20090205

REACTIONS (3)
  - IMPAIRED WORK ABILITY [None]
  - MUSCLE SPASMS [None]
  - SLEEP DISORDER [None]
